FAERS Safety Report 18371402 (Version 6)
Quarter: 2020Q4

REPORT INFORMATION
  Report Type: Spontaneous
  Country: BR (occurrence: BR)
  Receive Date: 20201012
  Receipt Date: 20201218
  Transmission Date: 20210114
  Serious: Yes (Life-Threatening, Hospitalization, Other)
  Sender: FDA-Public Use
  Company Number: NVSC2020BR273296

PATIENT
  Sex: Male
  Weight: 87 kg

DRUGS (6)
  1. VOLTAREN [Suspect]
     Active Substance: DICLOFENAC SODIUM
     Indication: PAIN IN EXTREMITY
     Dosage: UNK
     Route: 030
     Dates: start: 20200928
  2. OLEPTAL [Concomitant]
     Active Substance: OXCARBAZEPINE
     Indication: PRODUCT USED FOR UNKNOWN INDICATION
     Dosage: UNK
     Route: 065
     Dates: start: 20140228
  3. VOLTAREN [Suspect]
     Active Substance: DICLOFENAC SODIUM
     Indication: INTERVERTEBRAL DISC PROTRUSION
     Dosage: UNK
     Route: 065
     Dates: start: 19940824
  4. VOLTAREN [Suspect]
     Active Substance: DICLOFENAC SODIUM
     Indication: BACK PAIN
     Dosage: UNK (IN CASE OF PAINFUL CRISIS)
     Route: 030
     Dates: start: 20200929
  5. VOLTAREN [Suspect]
     Active Substance: DICLOFENAC SODIUM
     Dosage: UNK
     Route: 030
     Dates: start: 20201003
  6. OXCARBAZEPINE. [Concomitant]
     Active Substance: OXCARBAZEPINE
     Indication: PRODUCT USED FOR UNKNOWN INDICATION
     Dosage: UNK
     Route: 065
     Dates: start: 20150526

REACTIONS (15)
  - Drug ineffective [Unknown]
  - Organ failure [Unknown]
  - Balance disorder [Unknown]
  - Therapeutic product effect incomplete [Unknown]
  - Hypoacusis [Unknown]
  - Deafness unilateral [Unknown]
  - Vision blurred [Unknown]
  - Renal failure [Unknown]
  - Dizziness [Unknown]
  - Trigeminal neuralgia [Recovered/Resolved]
  - Loss of consciousness [Unknown]
  - Road traffic accident [Unknown]
  - Product packaging difficult to open [Unknown]
  - Fall [Unknown]
  - Dysstasia [Unknown]

NARRATIVE: CASE EVENT DATE: 20100628
